FAERS Safety Report 9351810 (Version 1)
Quarter: 2013Q2

REPORT INFORMATION
  Report Type: Report from Study
  Country: GB (occurrence: GB)
  Receive Date: 20130617
  Receipt Date: 20130617
  Transmission Date: 20140414
  Serious: Yes (Hospitalization)
  Sender: FDA-Public Use
  Company Number: GB-GLAXOSMITHKLINE-B0900137A

PATIENT
  Age: 83 Year
  Sex: Female
  Weight: 50.9 kg

DRUGS (12)
  1. OFATUMUMAB [Suspect]
     Indication: CHRONIC LYMPHOCYTIC LEUKAEMIA
     Route: 042
     Dates: start: 20130514, end: 20130521
  2. BENDAMUSTINE [Suspect]
     Indication: CHRONIC LYMPHOCYTIC LEUKAEMIA
     Route: 042
     Dates: start: 20130514, end: 20130515
  3. PARACETAMOL [Concomitant]
     Indication: CHRONIC LYMPHOCYTIC LEUKAEMIA
     Route: 048
     Dates: start: 20130514, end: 20130514
  4. CHLORPHENIRAMINE [Concomitant]
     Indication: CHRONIC LYMPHOCYTIC LEUKAEMIA
     Route: 042
     Dates: start: 20130514, end: 20130514
  5. ALLOPURINOL [Concomitant]
     Indication: CHRONIC LYMPHOCYTIC LEUKAEMIA
     Route: 048
     Dates: start: 20130514, end: 20130520
  6. METOCLOPRAMIDE [Concomitant]
     Indication: CHRONIC LYMPHOCYTIC LEUKAEMIA
     Route: 048
     Dates: start: 20130514
  7. ACICLOVIR [Concomitant]
     Indication: CHRONIC LYMPHOCYTIC LEUKAEMIA
     Route: 048
     Dates: start: 20130514
  8. HYDROCORTISONE [Concomitant]
     Indication: CHRONIC LYMPHOCYTIC LEUKAEMIA
     Route: 042
     Dates: start: 20130514, end: 20130514
  9. ACICLOVIR [Concomitant]
     Indication: ANTIVIRAL PROPHYLAXIS
     Dosage: 200MG THREE TIMES PER DAY
     Route: 048
     Dates: start: 20130514
  10. TAZOCIN [Concomitant]
     Indication: ANTIBIOTIC THERAPY
     Dosage: 4.5MG THREE TIMES PER DAY
     Route: 042
     Dates: start: 20130605, end: 20130607
  11. GENTAMICIN [Concomitant]
     Indication: ANTIBIOTIC THERAPY
     Dosage: 250MG PER DAY
     Route: 042
     Dates: start: 20130605, end: 20130607
  12. DALTEPARIN [Concomitant]
     Indication: THROMBOSIS PROPHYLAXIS
     Dosage: 5000UNIT PER DAY
     Route: 058
     Dates: start: 20130605

REACTIONS (1)
  - Febrile neutropenia [Not Recovered/Not Resolved]
